FAERS Safety Report 17916156 (Version 5)
Quarter: 2020Q4

REPORT INFORMATION
  Report Type: Spontaneous
  Country: JP (occurrence: JP)
  Receive Date: 20200619
  Receipt Date: 20201023
  Transmission Date: 20210113
  Serious: Yes (Other)
  Sender: FDA-Public Use
  Company Number: JP-ASTRAZENECA-2020SE77704

PATIENT
  Age: 69 Year
  Sex: Female
  Weight: 74 kg

DRUGS (16)
  1. FASLODEX [Suspect]
     Active Substance: FULVESTRANT
     Indication: BREAST CANCER FEMALE
     Route: 030
     Dates: start: 20181220, end: 20200609
  2. IBRANCE [Concomitant]
     Active Substance: PALBOCICLIB
     Route: 048
     Dates: start: 20191119, end: 20200623
  3. ZOLPIDEM TARTRATE. [Concomitant]
     Active Substance: ZOLPIDEM TARTRATE
     Route: 048
     Dates: end: 20200929
  4. PRAVASTATIN SODIUM. [Concomitant]
     Active Substance: PRAVASTATIN SODIUM
     Route: 048
     Dates: start: 20190214, end: 20200929
  5. TRAMCET [Concomitant]
     Active Substance: ACETAMINOPHEN\TRAMADOL
     Route: 048
     Dates: start: 20181206, end: 20200929
  6. EPERISONE HYDROCHLORIDE [Concomitant]
     Active Substance: EPERISONE HYDROCHLORIDE
     Route: 048
     Dates: start: 20181126, end: 20200929
  7. TELMISARTAN. [Concomitant]
     Active Substance: TELMISARTAN
     Route: 048
     Dates: end: 20200929
  8. METOCLOPRAMIDE. [Concomitant]
     Active Substance: METOCLOPRAMIDE
     Route: 048
     Dates: start: 20181206, end: 20200929
  9. BELSOMRA [Concomitant]
     Active Substance: SUVOREXANT
     Route: 048
     Dates: start: 20190108, end: 20200929
  10. DENOTAS [Concomitant]
     Active Substance: CALCIUM CARBONATE\CHOLECALCIFEROL\MAGNESIUM CARBONATE
     Route: 048
     Dates: start: 20191119, end: 20200929
  11. ZOLPIDEM TARTRATE. [Concomitant]
     Active Substance: ZOLPIDEM TARTRATE
     Route: 048
     Dates: start: 20181130
  12. NEXIUM [Concomitant]
     Active Substance: ESOMEPRAZOLE MAGNESIUM
     Route: 048
     Dates: start: 20181208, end: 20200929
  13. TELMISARTAN. [Concomitant]
     Active Substance: TELMISARTAN
     Route: 048
     Dates: start: 20191217
  14. ZOLEDRONIC ACID HYDRATE [Concomitant]
     Active Substance: ZOLEDRONIC ACID
     Route: 065
     Dates: start: 20190314, end: 20191021
  15. LOXOPROFEN [Concomitant]
     Active Substance: LOXOPROFEN
     Route: 048
     Dates: start: 20181130, end: 20200929
  16. RANMARK [Concomitant]
     Active Substance: DENOSUMAB
     Route: 058
     Dates: start: 20191119, end: 20200929

REACTIONS (8)
  - Injection site abscess [Not Recovered/Not Resolved]
  - Injection site induration [Recovering/Resolving]
  - Incorrect route of product administration [Unknown]
  - Injection site ulcer [Not Recovered/Not Resolved]
  - Injection site erythema [Unknown]
  - Injection site extravasation [Unknown]
  - Injection site necrosis [Unknown]
  - Injection site cellulitis [Not Recovered/Not Resolved]

NARRATIVE: CASE EVENT DATE: 20200610
